FAERS Safety Report 5070271-X (Version None)
Quarter: 2006Q3

REPORT INFORMATION
  Report Type: 
  Country: None (occurrence: None)
  Receive Date: 20060731
  Receipt Date: 20060714
  Transmission Date: 20061208
  Serious: Yes (Death, Life-Threatening, Disabling, Other)
  Sender: FDA-Public Use
  Company Number: 2006-01927

PATIENT
  Age: 54 Year
  Sex: Female

DRUGS (1)
  1. VELCADE [Suspect]
     Indication: MULTIPLE MYELOMA

REACTIONS (6)
  - ABDOMINAL DISTENSION [None]
  - HYPOKINESIA [None]
  - LOWER RESPIRATORY TRACT INFECTION [None]
  - NEURALGIA [None]
  - PERIPHERAL MOTOR NEUROPATHY [None]
  - URINARY RETENTION [None]
